FAERS Safety Report 23167081 (Version 1)
Quarter: 2023Q4

REPORT INFORMATION
  Report Type: Spontaneous
  Country: US (occurrence: US)
  Receive Date: 20231109
  Receipt Date: 20231109
  Transmission Date: 20240110
  Serious: Yes (Hospitalization, Other)
  Sender: FDA-Public Use
  Company Number: US-PFIZER INC-202300134147

PATIENT
  Age: 89 Year
  Sex: Male
  Weight: 89.54 kg

DRUGS (1)
  1. VYNDAMAX [Suspect]
     Active Substance: TAFAMIDIS
     Dosage: 61 MG, 1X/DAY (61MG CAPSULE ONE EVERY DAY IN THE MORNING BY MOUTH)
     Route: 048
     Dates: start: 2014

REACTIONS (5)
  - Seizure [Unknown]
  - Pneumonia [Recovered/Resolved]
  - Sepsis [Unknown]
  - Urinary tract infection [Unknown]
  - Cardiac pacemaker insertion [Unknown]
